FAERS Safety Report 7188791-0 (Version None)
Quarter: 2010Q4

REPORT INFORMATION
  Report Type: 
  Country: None (occurrence: None)
  Receive Date: 20101222
  Receipt Date: 20100727
  Transmission Date: 20110411
  Serious: No
  Sender: FDA-Public Use
  Company Number: US-AMGEN-KDL427528

PATIENT

DRUGS (7)
  1. ENBREL [Suspect]
     Indication: PSORIASIS
     Dosage: 50 MG, QWK
     Route: 058
     Dates: start: 20091113, end: 20100121
  2. CYCLOSPORINE [Concomitant]
     Dosage: UNK UNK, UNK
     Dates: start: 20100122
  3. CLOBETASOL [Concomitant]
     Dosage: UNK UNK, UNK
     Route: 061
     Dates: start: 20091106
  4. ACETAMINOPHEN AND HYDROCODONE BITARTRATE [Concomitant]
     Dosage: UNK UNK, UNK
     Dates: start: 20091210
  5. PREDNISONE [Concomitant]
     Dosage: UNK UNK, UNK
     Dates: start: 20091210, end: 20100110
  6. CEPHALEXIN MONOHYDRATE [Concomitant]
     Dosage: UNK UNK, UNK
     Dates: start: 20091210
  7. CORMAX [Concomitant]
     Dosage: UNK UNK, UNK
     Dates: start: 20091221

REACTIONS (3)
  - DRUG INEFFECTIVE [None]
  - GUTTATE PSORIASIS [None]
  - PSORIASIS [None]
